FAERS Safety Report 9121997 (Version 2)
Quarter: 2013Q4

REPORT INFORMATION
  Report Type: Spontaneous
  Country: GB (occurrence: GB)
  Receive Date: 20130114
  Receipt Date: 20131028
  Transmission Date: 20140711
  Serious: Yes (Hospitalization)
  Sender: FDA-Public Use
  Company Number: GB-RANBAXY-2012R1-63849

PATIENT
  Age: 30 Year
  Sex: 0

DRUGS (3)
  1. CEFALEXIN [Suspect]
     Indication: PYELONEPHRITIS
     Dosage: 500 MG, TID
     Route: 048
     Dates: start: 20110415, end: 20110422
  2. LOPERAMIDE [Concomitant]
     Indication: PRODUCT USED FOR UNKNOWN INDICATION
     Dosage: UNK
     Route: 065
     Dates: start: 20110501
  3. METRONIDAZOLE [Concomitant]
     Indication: PRODUCT USED FOR UNKNOWN INDICATION
     Dosage: 400 MG, TID
     Route: 048
     Dates: start: 20110501, end: 20110508

REACTIONS (1)
  - Clostridium difficile infection [Unknown]
